FAERS Safety Report 7486711-2 (Version None)
Quarter: 2011Q2

REPORT INFORMATION
  Report Type: 
  Country: None (occurrence: None)
  Receive Date: 20110517
  Receipt Date: 20100902
  Transmission Date: 20111010
  Serious: No
  Sender: FDA-Public Use
  Company Number: US-NOVEN-ALL1-2010-03959

PATIENT
  Sex: Female
  Weight: 37.188 kg

DRUGS (2)
  1. DAYTRANA [Suspect]
     Dosage: 20 MG, 1X/DAY:QD
     Route: 062
     Dates: start: 20090201
  2. CLONIDINE [Concomitant]
     Dosage: .2 MG, 1X/DAY:QD (TWO 0.1 MG TABLETS AT NIGHT)
     Route: 048
     Dates: start: 20070101

REACTIONS (6)
  - PRODUCT QUALITY ISSUE [None]
  - DRUG ADMINISTERED AT INAPPROPRIATE SITE [None]
  - DRUG INEFFECTIVE [None]
  - WRONG TECHNIQUE IN DRUG USAGE PROCESS [None]
  - IRRITABILITY [None]
  - NEGATIVISM [None]
